FAERS Safety Report 9834541 (Version 1)
Quarter: 2014Q1

REPORT INFORMATION
  Report Type: Spontaneous
  Country: FR (occurrence: FR)
  Receive Date: 20140122
  Receipt Date: 20140122
  Transmission Date: 20141002
  Serious: Yes (Hospitalization)
  Sender: FDA-Public Use
  Company Number: FR-PFIZER INC-2014010810

PATIENT
  Age: 86 Year
  Sex: Female

DRUGS (10)
  1. ALDACTONE [Suspect]
     Dosage: 25 MG, 1X/DAY
     Route: 048
     Dates: end: 20131125
  2. EUPANTOL [Suspect]
     Dosage: 40 MG, 1X/DAY
     Route: 048
     Dates: end: 20131125
  3. LASILIX [Suspect]
     Indication: ASTHMA
     Dosage: 40 MG, 1X/DAY
     Route: 048
  4. LASILIX [Suspect]
     Dosage: 40 MG, SINGLE
     Route: 042
     Dates: start: 20131115, end: 20131115
  5. LASILIX [Suspect]
     Dosage: 60 MG, DAILY
     Dates: start: 201311, end: 201311
  6. ATACAND [Suspect]
     Dosage: 16 MG, 1X/DAY
     Route: 048
  7. LEVOTHYROX [Concomitant]
  8. PREVISCAN [Concomitant]
  9. GAVISCON [Concomitant]
  10. STILNOX [Concomitant]

REACTIONS (2)
  - Hyponatraemia [Recovered/Resolved]
  - Renal failure acute [Recovering/Resolving]
